FAERS Safety Report 5943456-5 (Version None)
Quarter: 2008Q4

REPORT INFORMATION
  Report Type: 
  Country: None (occurrence: None)
  Receive Date: 20081105
  Receipt Date: 20081105
  Transmission Date: 20090506
  Serious: No
  Sender: FDA-Public Use
  Company Number: None

PATIENT
  Sex: Female

DRUGS (2)
  1. DEPAKOTE ER [Suspect]
     Dosage: 750MG BID PO
     Route: 048
     Dates: start: 20080101, end: 20081104
  2. DEPAKOTE ER [Suspect]

REACTIONS (2)
  - BLOOD ALBUMIN DECREASED [None]
  - THROMBOCYTOPENIA [None]
